FAERS Safety Report 11058512 (Version 1)
Quarter: 2015Q2

REPORT INFORMATION
  Report Type: Report from Study
  Country: US (occurrence: None)
  Receive Date: 20150420
  Receipt Date: 20150420
  Transmission Date: 20150821
  Serious: No
  Sender: FDA-Public Use
  Company Number: AEGR001067

PATIENT
  Age: 68 Year
  Sex: Female
  Weight: 65.3 kg

DRUGS (12)
  1. METFORMIN [Concomitant]
     Active Substance: METFORMIN HYDROCHLORIDE
  2. NAPROXEN (NAPROXEN SODIUM) [Concomitant]
  3. SENOKOT (SENNOSIDE A+B) [Concomitant]
  4. ASPIRIN (ACETYLSALICYLIC ACID) [Concomitant]
     Active Substance: ASPIRIN
  5. JUXTAPID [Suspect]
     Active Substance: LOMITAPIDE MESYLATE
     Indication: TYPE IIA HYPERLIPIDAEMIA
     Route: 048
     Dates: start: 20140126, end: 20141130
  6. LEVOTHYROXINE (LEVOTHYROXINE SODIUM) [Concomitant]
  7. OMEPRAZOLE. [Concomitant]
     Active Substance: OMEPRAZOLE
  8. ALLEGRA (FEXOFENADINE HYDROCHLORIDE) [Concomitant]
  9. LOSARTAN (LOSARTAN POTASSIUM) [Concomitant]
  10. HYDROCHLOROTHIAZIDE. [Concomitant]
     Active Substance: HYDROCHLOROTHIAZIDE
  11. NADOLOL. [Concomitant]
     Active Substance: NADOLOL
  12. FLUTICASONE [Concomitant]
     Active Substance: FLUTICASONE\FLUTICASONE PROPIONATE

REACTIONS (8)
  - Abdominal distension [None]
  - Nausea [None]
  - Flatulence [None]
  - Abdominal pain upper [None]
  - Yellow skin [None]
  - Drug dose omission [None]
  - Constipation [None]
  - Diarrhoea [None]

NARRATIVE: CASE EVENT DATE: 20141224
